FAERS Safety Report 14103271 (Version 7)
Quarter: 2025Q1

REPORT INFORMATION
  Report Type: Spontaneous
  Country: US (occurrence: US)
  Receive Date: 20171018
  Receipt Date: 20250206
  Transmission Date: 20250409
  Serious: Yes (Other)
  Sender: PFIZER
  Company Number: US-PFIZER INC-2017448403

PATIENT
  Age: 79 Year
  Sex: Female

DRUGS (14)
  1. METHOTREXATE SODIUM [Suspect]
     Active Substance: METHOTREXATE SODIUM
     Indication: Rheumatoid arthritis
     Route: 058
     Dates: start: 20140911, end: 201601
  2. ASPIRIN [Concomitant]
     Active Substance: ASPIRIN
  3. COUMADIN [Concomitant]
     Active Substance: WARFARIN SODIUM
  4. CURCUMIN [Concomitant]
     Active Substance: CURCUMIN
  5. LOVASTATIN [Concomitant]
     Active Substance: LOVASTATIN
  6. CHONDROITIN SULFATE A\GLUCOSAMINE [Concomitant]
     Active Substance: CHONDROITIN SULFATE A\GLUCOSAMINE
  7. PEPCID [Concomitant]
     Active Substance: FAMOTIDINE
  8. TOPROL XL [Concomitant]
     Active Substance: METOPROLOL SUCCINATE
  9. TRAMADOL [Concomitant]
     Active Substance: TRAMADOL
  10. TRAZODONE [Concomitant]
     Active Substance: TRAZODONE HYDROCHLORIDE
  11. VOLTAREN [Concomitant]
     Active Substance: DICLOFENAC SODIUM
     Route: 061
  12. XELJANZ [Concomitant]
     Active Substance: TOFACITINIB CITRATE
     Indication: Osteoarthritis
  13. ZOLOFT [Concomitant]
     Active Substance: SERTRALINE HYDROCHLORIDE
     Indication: Osteoarthritis
  14. PROLIA [Concomitant]
     Active Substance: DENOSUMAB

REACTIONS (2)
  - Angioedema [Unknown]
  - Drug hypersensitivity [Unknown]
